FAERS Safety Report 12796876 (Version 1)
Quarter: 2016Q3

REPORT INFORMATION
  Report Type: Spontaneous
  Country: US (occurrence: US)
  Receive Date: 20160929
  Receipt Date: 20160929
  Transmission Date: 20161109
  Serious: No
  Sender: FDA-Public Use
  Company Number: None

PATIENT
  Age: 85 Year
  Sex: Male

DRUGS (11)
  1. ISOSORB MONO [Concomitant]
     Active Substance: ISOSORBIDE MONONITRATE
  2. MACULAR VIT [Concomitant]
  3. MELOXICAM. [Concomitant]
     Active Substance: MELOXICAM
  4. NUPLAZID [Suspect]
     Active Substance: PIMAVANSERIN TARTRATE
     Indication: PARKINSON^S DISEASE
     Route: 048
     Dates: start: 201609
  5. NEUPRO [Concomitant]
     Active Substance: ROTIGOTINE
  6. AZILECT [Concomitant]
     Active Substance: RASAGILINE MESYLATE
  7. STALEVO [Concomitant]
     Active Substance: CARBIDOPA\ENTACAPONE\LEVODOPA
  8. CEPHALEXIN. [Concomitant]
     Active Substance: CEPHALEXIN
  9. CARVEDILOL. [Concomitant]
     Active Substance: CARVEDILOL
  10. ASPIRIN. [Concomitant]
     Active Substance: ASPIRIN
  11. SIMVASTATIN. [Concomitant]
     Active Substance: SIMVASTATIN

REACTIONS (1)
  - Oedema peripheral [None]

NARRATIVE: CASE EVENT DATE: 201609
